FAERS Safety Report 5798299-2 (Version None)
Quarter: 2008Q3

REPORT INFORMATION
  Report Type: 
  Country: None (occurrence: None)
  Receive Date: 20080702
  Receipt Date: 20080624
  Transmission Date: 20090109
  Serious: Yes (Other)
  Sender: FDA-Public Use
  Company Number: FR-JNJFOC-20080700187

PATIENT
  Age: 82 Year
  Sex: Female

DRUGS (2)
  1. OFLOCET [Suspect]
     Indication: INFECTION
     Route: 065
  2. CLOXACILLIN SODIUM [Suspect]
     Indication: INFECTION
     Route: 065

REACTIONS (4)
  - HAEMODYNAMIC INSTABILITY [None]
  - PYREXIA [None]
  - RENAL FAILURE ACUTE [None]
  - TOXIC SKIN ERUPTION [None]
